FAERS Safety Report 21456162 (Version 1)
Quarter: 2022Q4

REPORT INFORMATION
  Report Type: Spontaneous
  Country: US (occurrence: US)
  Receive Date: 20221014
  Receipt Date: 20221014
  Transmission Date: 20230113
  Serious: No
  Sender: FDA-Public Use
  Company Number: US-JNJFOC-20221019832

PATIENT

DRUGS (1)
  1. PONVORY [Suspect]
     Active Substance: PONESIMOD
     Indication: Product used for unknown indication
     Route: 048

REACTIONS (5)
  - Somnolence [Unknown]
  - Somnolence [Unknown]
  - Vertigo [Unknown]
  - Hypoaesthesia [Unknown]
  - Pain [Unknown]
